FAERS Safety Report 14819710 (Version 1)
Quarter: 2018Q2

REPORT INFORMATION
  Report Type: Report from Study
  Country: US (occurrence: US)
  Receive Date: 20180427
  Receipt Date: 20180427
  Transmission Date: 20180711
  Serious: Yes (Hospitalization, Other)
  Sender: FDA-Public Use
  Company Number: US-BAYER-2018-079027

PATIENT
  Age: 47 Year
  Sex: Female

DRUGS (3)
  1. ASPIRIN. [Suspect]
     Active Substance: ASPIRIN
     Dosage: 650 MG, UNK
  2. HEPARIN [Suspect]
     Active Substance: HEPARIN SODIUM
  3. CLOPIDOGREL [Suspect]
     Active Substance: CLOPIDOGREL BISULFATE
     Dosage: 600 MG, UNK

REACTIONS (4)
  - Procedural haemorrhage [None]
  - Haemorrhage [None]
  - Labelled drug-drug interaction medication error [None]
  - Drug administration error [None]
